FAERS Safety Report 8315693-6 (Version None)
Quarter: 2012Q2

REPORT INFORMATION
  Report Type: 
  Country: None (occurrence: None)
  Receive Date: 20120426
  Receipt Date: 20120423
  Transmission Date: 20120825
  Serious: Yes (Hospitalization, Other)
  Sender: FDA-Public Use
  Company Number: PHHY2012BR030313

PATIENT
  Sex: Male
  Weight: 71 kg

DRUGS (1)
  1. AROTIN [Suspect]
     Indication: ANXIETY
     Dosage: 1 DF, QD
     Route: 048
     Dates: start: 20120321

REACTIONS (3)
  - INSOMNIA [None]
  - DECREASED APPETITE [None]
  - ROAD TRAFFIC ACCIDENT [None]
